FAERS Safety Report 7347612-3 (Version None)
Quarter: 2011Q1

REPORT INFORMATION
  Report Type: 
  Country: None (occurrence: None)
  Receive Date: 20110311
  Receipt Date: 20110307
  Transmission Date: 20110831
  Serious: Yes (Other)
  Sender: FDA-Public Use
  Company Number: US-AMGEN-USASP2011011565

PATIENT
  Age: 42 Year
  Sex: Female

DRUGS (67)
  1. NEUPOGEN [Suspect]
     Indication: CHEMOTHERAPY
     Dosage: 480 A?G, UNK
     Dates: start: 20110119, end: 20110120
  2. NEUPOGEN [Suspect]
     Dosage: 480 A?G, ONE TIME DOSE
     Dates: start: 20110202
  3. NEUPOGEN [Suspect]
     Dosage: 480 A?G, QD
     Dates: start: 20110216, end: 20110218
  4. GEMZAR [Concomitant]
     Dosage: 600 MG, UNK
     Route: 042
     Dates: start: 20110302
  5. DILAUDID [Concomitant]
     Dosage: 2 MG, ONE TIME DOSE
     Route: 042
     Dates: start: 20110126
  6. DEXAMETHASONE [Concomitant]
     Dosage: 20 MG, ONE TIME DOSE
     Route: 042
     Dates: start: 20110106
  7. DEXAMETHASONE [Concomitant]
     Dosage: 20 MG, ONE TIME DOSE
     Route: 042
     Dates: start: 20110126
  8. MANNITOL [Concomitant]
     Dosage: 12.5 G, ONE TIME DOSE
     Route: 042
     Dates: start: 20110106
  9. MANNITOL [Concomitant]
     Dosage: 12.5 G, QWK
     Route: 042
     Dates: start: 20110303
  10. MAGNESIUM SULFATE [Concomitant]
     Dosage: 2 G, ONE TIME DOSE
     Route: 042
     Dates: start: 20110106
  11. MAGNESIUM SULFATE [Concomitant]
     Dosage: 2 G, ONE TIME DOSE
     Route: 042
     Dates: start: 20110126
  12. MAGNESIUM SULFATE [Concomitant]
     Dosage: 2 G, ONE TIME DOSE
     Dates: start: 20110216
  13. MAGNESIUM SULFATE [Concomitant]
     Dosage: 2 G, QWK
     Route: 042
     Dates: start: 20110302
  14. SALINE                             /00075401/ [Concomitant]
     Dosage: 500 ML, ONE TIME DOSE
     Dates: start: 20110119
  15. FUROSEMIDE [Concomitant]
     Dosage: 20 MG, ONE TIME DOSE
     Dates: start: 20110216
  16. ONDANSETRON [Concomitant]
     Dosage: 8 MG, ONE TIME DOSE
     Route: 048
     Dates: start: 20110209
  17. APREPITANT [Concomitant]
     Dosage: 115 MG, ONE TIME DOSE
     Route: 042
     Dates: start: 20110126
  18. AZITHROMYCIN [Concomitant]
     Dosage: 250 MG, ONE TIME DOSE
     Route: 048
     Dates: start: 20110126
  19. CISPLATIN [Concomitant]
     Dosage: 36 MG, ONE TIME DOSE
     Route: 042
     Dates: start: 20110106
  20. CISPLATIN [Concomitant]
     Dosage: 40 MG, ONE TIME DOSE
     Route: 042
     Dates: start: 20110216
  21. POTASSIUM CHLORIDE [Concomitant]
     Dosage: 10 MEQ, QWK
     Route: 042
     Dates: start: 20110302
  22. DEXAMETHASONE [Concomitant]
     Dosage: 20 MG, QWK
     Route: 042
     Dates: start: 20110302
  23. MANNITOL [Concomitant]
     Dosage: 12.5 G, ONE TIME DOSE
     Dates: start: 20110126
  24. SALINE                             /00075401/ [Concomitant]
     Dosage: 500 ML, ONE TIME DOSE
     Dates: start: 20110209
  25. FUROSEMIDE [Concomitant]
     Dosage: 20 MG, ONE TIME DOSE
     Dates: start: 20110126
  26. FUROSEMIDE [Concomitant]
     Dosage: 20 MG, UNK
     Dates: start: 20110302
  27. CIPROFLOXACIN [Concomitant]
     Dosage: 500 MG, ONE TIME DOSE
     Route: 048
     Dates: start: 20110202
  28. OXYCONTIN [Concomitant]
     Dosage: 10 MG, UNK
     Route: 048
  29. POTASSIUM CHLORIDE [Concomitant]
     Dosage: 10 MEQ, ONE TIME DOSE
     Route: 042
     Dates: start: 20110126
  30. MANNITOL [Concomitant]
     Dosage: 12.5 G, ONE TIME DOSE
     Route: 042
     Dates: start: 20110209
  31. MANNITOL [Concomitant]
     Dosage: 12.5 MG, ONE TIME DOSE
     Route: 042
     Dates: start: 20110216
  32. MAGNESIUM SULFATE [Concomitant]
     Dosage: 2 G, ONE TIME DOSE
     Route: 042
     Dates: start: 20110209
  33. APREPITANT [Concomitant]
     Dosage: 80 MG, ONE TIME DOSE
     Route: 048
     Dates: start: 20110219
  34. CISPLATIN [Concomitant]
     Dosage: 40 MG, ONE TIME DOSE
     Route: 042
     Dates: start: 20110126
  35. POTASSIUM CHLORIDE [Concomitant]
     Dosage: 10 MEQ, ONE TIME DOSE
     Route: 042
     Dates: start: 20110209
  36. PALONOSETRON [Concomitant]
     Dosage: 0.25 MG, ONE TIME DOSE
     Route: 042
     Dates: start: 20110106
  37. SALINE                             /00075401/ [Concomitant]
     Dosage: 500 ML, ONE TIME DOSE
     Dates: start: 20110126
  38. FUROSEMIDE [Concomitant]
     Dosage: 20 MG, ONE TIME DOSE
     Route: 042
     Dates: start: 20110106
  39. NEUPOGEN [Suspect]
     Dosage: 480 A?G, ONE TIME DOSE
     Dates: start: 20110307
  40. POTASSIUM CHLORIDE [Concomitant]
     Dosage: 10 MEQ, ONE TIME DOSE
     Route: 042
     Dates: start: 20110216
  41. PALONOSETRON [Concomitant]
     Dosage: 0.25 MG, ONE TIME DOSE
     Route: 042
     Dates: start: 20110209
  42. PALONOSETRON [Concomitant]
     Dosage: 0.25 MG, ONE TIME DOSE
     Route: 042
     Dates: start: 20110302
  43. SALINE                             /00075401/ [Concomitant]
     Dosage: 500 ML, ONE TIME DOSE
     Dates: start: 20110106
  44. NEUPOGEN [Suspect]
     Dosage: 480 A?G, ONE TIME DOSE
     Dates: start: 20110211
  45. GEMZAR [Concomitant]
     Dosage: 600 MG, ONE TIME DOSE
     Route: 042
     Dates: start: 20110209
  46. DILAUDID [Concomitant]
     Dosage: 2 MG, ONE TIME DOSE
     Route: 042
     Dates: start: 20110106
  47. VICODIN [Concomitant]
  48. ALEVE [Concomitant]
  49. PALONOSETRON [Concomitant]
     Dosage: 0.25 MG, ONE TIME DOSE
     Route: 042
     Dates: start: 20110126
  50. SALINE                             /00075401/ [Concomitant]
     Dosage: 500 ML, ONE TIME DOSE
     Dates: start: 20110216
  51. ZOLEDRONIC ACID [Concomitant]
     Dosage: 4 MG, ONE TIME DOSE
     Route: 042
     Dates: start: 20110126
  52. XGEVA [Suspect]
     Indication: METASTASES TO BONE
     Dosage: 120 MG, Q4WK
     Route: 058
     Dates: start: 20110217
  53. NEUPOGEN [Suspect]
     Dosage: 480 A?G, ONE TIME DOSE
     Dates: start: 20110209
  54. CALCIUM [Concomitant]
     Dosage: 2 G, UNK
  55. CISPLATIN [Concomitant]
     Dosage: 40 MG, QWK
     Route: 042
     Dates: start: 20110302
  56. GEMZAR [Concomitant]
     Dosage: 730 MG, ONE TIME DOSE
     Route: 042
     Dates: start: 20110106
  57. GEMZAR [Concomitant]
     Dosage: 600 MG, ONE TIME DOSE
     Route: 042
     Dates: start: 20110126
  58. GEMZAR [Concomitant]
     Dosage: 600 MG, QWK
     Dates: start: 20110216
  59. DEXAMETHASONE [Concomitant]
     Dosage: 10 MG, ONE TIME DOSE
     Route: 042
     Dates: start: 20110307
  60. FUROSEMIDE [Concomitant]
     Dosage: 20 MG, ONE TIME DOSE
     Dates: start: 20110209
  61. ONDANSETRON [Concomitant]
     Dosage: 32 MG, ONE TIME DOSE
     Route: 042
     Dates: start: 20110307
  62. CISPLATIN [Concomitant]
     Dosage: 40 MG, ONE TIME DOSE
     Route: 042
     Dates: start: 20110209
  63. POTASSIUM CHLORIDE [Concomitant]
     Dosage: 10 MEQ, ONE TIME DOSE
     Route: 042
     Dates: start: 20100202
  64. PALONOSETRON [Concomitant]
     Dosage: 0.25 MG, ONE TIME DOSE
     Route: 042
     Dates: start: 20110216
  65. DEXAMETHASONE [Concomitant]
     Dosage: 20 MG, ONE TIME DOSE
     Route: 042
     Dates: start: 20110209
  66. SALINE                             /00075401/ [Concomitant]
     Dosage: 500 ML, UNK
     Dates: start: 20110302
  67. APREPITANT [Concomitant]
     Dosage: 115 MG, ONE TIME DOSE
     Route: 042
     Dates: start: 20110106

REACTIONS (10)
  - NEOPLASM MALIGNANT [None]
  - MASTICATION DISORDER [None]
  - BACK PAIN [None]
  - GLOSSODYNIA [None]
  - DISCOMFORT [None]
  - BREAST PAIN [None]
  - TOOTH DISORDER [None]
  - ABDOMINAL TENDERNESS [None]
  - ABDOMINAL DISCOMFORT [None]
  - LOOSE TOOTH [None]
